FAERS Safety Report 9782807 (Version 1)
Quarter: 2013Q4

REPORT INFORMATION
  Report Type: Spontaneous
  Country: US (occurrence: US)
  Receive Date: 20131226
  Receipt Date: 20131226
  Transmission Date: 20140711
  Serious: No
  Sender: FDA-Public Use
  Company Number: US-ABBVIE-13P-163-1124642-00

PATIENT
  Age: 80 Year
  Sex: Male
  Weight: 97.61 kg

DRUGS (8)
  1. LUPRON DEPOT [Suspect]
     Indication: PROSTATE CANCER
     Route: 030
     Dates: start: 20130424
  2. CAPTOPRIL [Concomitant]
     Indication: HYPERTENSION
  3. GLIPIZIDE [Concomitant]
     Indication: DIABETES MELLITUS
  4. METFORMIN [Concomitant]
     Indication: DIABETES MELLITUS
  5. METOPROLOL [Concomitant]
     Indication: HYPERTENSION
  6. NIFEDIPINE [Concomitant]
     Indication: HYPERTENSION
  7. PENTOXIFYLLINE [Concomitant]
     Indication: CARDIOVASCULAR DISORDER
  8. TIMOLOL [Concomitant]
     Indication: GLAUCOMA

REACTIONS (2)
  - Urticaria [Recovering/Resolving]
  - Pruritus [Recovering/Resolving]
